FAERS Safety Report 14679704 (Version 1)
Quarter: 2018Q1

REPORT INFORMATION
  Report Type: Spontaneous
  Country: GB (occurrence: GB)
  Receive Date: 20180326
  Receipt Date: 20180326
  Transmission Date: 20180509
  Serious: Yes (Disabling, Other)
  Sender: FDA-Public Use
  Company Number: GB-AUROBINDO-AUR-APL-2018-016020

PATIENT
  Age: 13 Year
  Sex: Female
  Weight: 50.4 kg

DRUGS (7)
  1. DOCUSATE [Concomitant]
     Active Substance: DOCUSATE
     Indication: CONSTIPATION
     Dosage: ONGOING
     Route: 048
     Dates: start: 20170602
  2. CARBAMAZEPINE. [Concomitant]
     Active Substance: CARBAMAZEPINE
     Indication: TEMPORAL LOBE EPILEPSY
     Dosage: ONGOING
     Route: 048
     Dates: start: 20170602
  3. LAXIDO [Concomitant]
     Active Substance: POLYETHYLENE GLYCOL 3350\POTASSIUM CHLORIDE\SODIUM BICARBONATE\SODIUM CHLORIDE
     Indication: CONSTIPATION
     Dosage: ONGOING
     Route: 048
     Dates: start: 20170607
  4. CASSIA ACUTIFOLIA [Concomitant]
     Indication: CONSTIPATION
     Dosage: ONGOING. WEEKDAYS.
     Route: 048
     Dates: start: 20180112
  5. QUETIAPINE. [Suspect]
     Active Substance: QUETIAPINE
     Indication: PSYCHOTIC SYMPTOM
     Dosage: 75 MILLIGRAM
     Route: 048
     Dates: start: 20180111, end: 20180208
  6. TOPIRAMATE. [Concomitant]
     Active Substance: TOPIRAMATE
     Indication: TEMPORAL LOBE EPILEPSY
     Dosage: ONGOING
     Route: 048
     Dates: start: 20171121
  7. MELATONIN [Concomitant]
     Active Substance: MELATONIN
     Indication: POOR QUALITY SLEEP
     Dosage: ONGOING. AT NIGHT.
     Route: 048
     Dates: start: 20171116

REACTIONS (2)
  - Convulsive threshold lowered [Recovered/Resolved]
  - Epilepsy [Recovered/Resolved]

NARRATIVE: CASE EVENT DATE: 20170811
